FAERS Safety Report 15397248 (Version 1)
Quarter: 2018Q3

REPORT INFORMATION
  Report Type: Report from Study
  Country: CA (occurrence: CA)
  Receive Date: 20180918
  Receipt Date: 20180918
  Transmission Date: 20181010
  Serious: Yes (Hospitalization)
  Sender: FDA-Public Use
  Company Number: PHHY2016CA172955

PATIENT
  Age: 58 Year
  Sex: Male

DRUGS (2)
  1. SANDOSTATIN [Suspect]
     Active Substance: OCTREOTIDE ACETATE
     Indication: CARCINOID TUMOUR
     Dosage: 20 MG, QMO
     Route: 030
     Dates: start: 20160915
  2. PANTOPRAZOL [Suspect]
     Active Substance: PANTOPRAZOLE SODIUM
     Indication: PRODUCT USED FOR UNKNOWN INDICATION
     Dosage: UNK
     Route: 065
     Dates: start: 2016

REACTIONS (8)
  - Weight decreased [Not Recovered/Not Resolved]
  - Dyspnoea [Unknown]
  - Decubitus ulcer [Unknown]
  - Body temperature decreased [Unknown]
  - Cough [Unknown]
  - Asthenia [Unknown]
  - Blood pressure decreased [Unknown]
  - Intestinal obstruction [Unknown]

NARRATIVE: CASE EVENT DATE: 201611
